FAERS Safety Report 8553380-X (Version None)
Quarter: 2012Q3

REPORT INFORMATION
  Report Type: 
  Country: None (occurrence: None)
  Receive Date: 20120731
  Receipt Date: 20120723
  Transmission Date: 20120928
  Serious: Yes (Life-Threatening, Hospitalization)
  Sender: FDA-Public Use
  Company Number: GB-ROCHE-1091237

PATIENT
  Age: 46 Year
  Sex: Male
  Weight: 85 kg

DRUGS (5)
  1. LANTUS [Concomitant]
     Indication: DIABETES MELLITUS
     Route: 058
  2. RAMIPRIL [Concomitant]
     Indication: BLOOD PRESSURE
     Route: 048
  3. AVASTIN [Suspect]
     Indication: RETINOPATHY
     Route: 050
     Dates: start: 20110826, end: 20110826
  4. AVASTIN [Suspect]
     Indication: OFF LABEL USE
  5. NOVORAPID [Concomitant]
     Indication: DIABETES MELLITUS
     Route: 058

REACTIONS (3)
  - ARTERIOSCLEROSIS CORONARY ARTERY [None]
  - EMBOLIC STROKE [None]
  - CEREBROVASCULAR ACCIDENT [None]
